FAERS Safety Report 8843569 (Version 1)
Quarter: 2012Q4

REPORT INFORMATION
  Report Type: 
  Country: US (occurrence: US)
  Receive Date: 20121016
  Receipt Date: 20121016
  Transmission Date: 20130627
  Serious: No
  Sender: FDA-Public Use
  Company Number: US-ASTRAZENECA-2012SE77646

PATIENT
  Sex: Female

DRUGS (4)
  1. NEXIUM [Suspect]
     Indication: ABDOMINAL PAIN UPPER
     Route: 048
     Dates: start: 201210
  2. NEXIUM [Suspect]
     Indication: ULCER
     Route: 048
     Dates: start: 201210
  3. PRILOSEC [Suspect]
     Indication: ULCER
     Route: 048
  4. PRILOSEC [Suspect]
     Indication: ABDOMINAL PAIN UPPER
     Route: 048

REACTIONS (4)
  - Chest pain [Unknown]
  - Back pain [Unknown]
  - Drug ineffective [Unknown]
  - Off label use [Unknown]
